FAERS Safety Report 7884370-8 (Version None)
Quarter: 2011Q4

REPORT INFORMATION
  Report Type: 
  Country: None (occurrence: None)
  Receive Date: 20111102
  Receipt Date: 20111018
  Transmission Date: 20120403
  Serious: Yes (Hospitalization, Other)
  Sender: FDA-Public Use
  Company Number: BR-ROCHE-717115

PATIENT
  Sex: Female
  Weight: 60 kg

DRUGS (24)
  1. ACTEMRA [Suspect]
     Route: 042
  2. ACTEMRA [Suspect]
     Route: 042
  3. ACTEMRA [Suspect]
     Route: 042
  4. INSULIN [Concomitant]
     Dosage: 26 U/DAY
  5. PANTOPRAZOLE [Concomitant]
  6. LEVOTHYROXINE SODIUM [Concomitant]
  7. EPILEPTIL [Concomitant]
  8. ACTEMRA [Suspect]
     Route: 042
  9. METHOTREXATE [Concomitant]
  10. TRAMADOL HCL [Concomitant]
  11. FLUOXETINE HCL [Concomitant]
  12. ACTEMRA [Suspect]
     Route: 042
  13. LEVOTHYROXINE SODIUM [Concomitant]
  14. ACTEMRA [Suspect]
     Route: 042
  15. OMEPRAZOLE [Concomitant]
  16. CARBAMAZEPINE [Concomitant]
     Indication: DEPRESSION
     Dosage: AT NIGHT
  17. CLONAZEPAM [Concomitant]
  18. ACTEMRA [Suspect]
     Route: 042
  19. CARBOLITIUM [Concomitant]
     Indication: DEPRESSION
  20. PREDNISONE [Concomitant]
  21. CITONEURIN [Concomitant]
  22. TETREX [Concomitant]
  23. ACTEMRA [Suspect]
     Indication: RHEUMATOID ARTHRITIS
     Dosage: ROUTE: ENDOVENOUS; FORM: INFUSION
     Route: 042
  24. METFORMIN HCL [Concomitant]

REACTIONS (17)
  - LOWER LIMB FRACTURE [None]
  - BREAST DISORDER [None]
  - JOINT SWELLING [None]
  - HAND DEFORMITY [None]
  - OEDEMA PERIPHERAL [None]
  - DRY SKIN [None]
  - BACTERIAL INFECTION [None]
  - ARTHRALGIA [None]
  - PAIN [None]
  - THERAPEUTIC RESPONSE DECREASED [None]
  - SEROMA [None]
  - MEDICAL DEVICE COMPLICATION [None]
  - PAIN IN EXTREMITY [None]
  - DEPRESSION [None]
  - PETECHIAE [None]
  - NERVOUSNESS [None]
  - MEMORY IMPAIRMENT [None]
